FAERS Safety Report 9883899 (Version 2)
Quarter: 2014Q1

REPORT INFORMATION
  Report Type: Spontaneous
  Country: US (occurrence: US)
  Receive Date: 20140210
  Receipt Date: 20140210
  Transmission Date: 20141002
  Serious: No
  Sender: FDA-Public Use
  Company Number: US-ALLERGAN-1317452US

PATIENT
  Sex: Male

DRUGS (1)
  1. BOTOX [Suspect]
     Indication: MIGRAINE
     Dosage: 15 UNITS, SINGLE
     Route: 030
     Dates: start: 20131104, end: 20131104

REACTIONS (2)
  - Pain in extremity [Recovered/Resolved]
  - Adverse event [Recovered/Resolved]
